FAERS Safety Report 23642206 (Version 1)
Quarter: 2024Q1

REPORT INFORMATION
  Report Type: Spontaneous
  Country: US (occurrence: US)
  Receive Date: 20240318
  Receipt Date: 20240318
  Transmission Date: 20240410
  Serious: No
  Sender: FDA-Public Use
  Company Number: US-BRISTOL-MYERS SQUIBB COMPANY-2024-042477

PATIENT
  Age: 73 Year
  Sex: Male

DRUGS (1)
  1. REVLIMID [Suspect]
     Active Substance: LENALIDOMIDE
     Indication: Plasma cell myeloma
     Dosage: 2.5 MG CAPSULE BY MOUTH 21 DAYS ON 7 DAYS OFF
     Route: 048
     Dates: start: 20211209

REACTIONS (2)
  - Haemorrhage [Unknown]
  - Platelet count decreased [Unknown]
